FAERS Safety Report 9222277 (Version 1)
Quarter: 2013Q2

REPORT INFORMATION
  Report Type: Spontaneous
  Country: NL (occurrence: None)
  Receive Date: 20130408
  Receipt Date: 20130408
  Transmission Date: 20140414
  Serious: Yes (Death, Hospitalization, Other)
  Sender: FDA-Public Use
  Company Number: 2013AP004035

PATIENT
  Age: 74 Year
  Sex: Female

DRUGS (5)
  1. PREDNISOLONE (PREDNISOLONE) [Suspect]
     Indication: DIFFUSE LARGE B-CELL LYMPHOMA
  2. RITUXIMAB (RITUXIMAB) [Suspect]
     Indication: DIFFUSE LARGE B-CELL LYMPHOMA
  3. CYCLOPHOSPHAMIDE (CYCLOPHOSPHAMIDE) [Suspect]
     Indication: DIFFUSE LARGE B-CELL LYMPHOMA
  4. DOXORUBICIN (DOXORUBICIN) (DOXORUBICIN) [Suspect]
     Indication: DIFFUSE LARGE B-CELL LYMPHOMA
  5. VINCRISTINE [Suspect]
     Indication: DIFFUSE LARGE B-CELL LYMPHOMA

REACTIONS (5)
  - Progressive multifocal leukoencephalopathy [None]
  - Weight decreased [None]
  - Fatigue [None]
  - Demyelination [None]
  - JC virus test positive [None]
